FAERS Safety Report 6242880-3 (Version None)
Quarter: 2009Q2

REPORT INFORMATION
  Report Type: 
  Country: None (occurrence: None)
  Receive Date: 20090624
  Receipt Date: 20090618
  Transmission Date: 20091009
  Serious: Yes (Other)
  Sender: FDA-Public Use
  Company Number: US-ASTRAZENECA-2009UW12918

PATIENT
  Age: 442 Month
  Sex: Female

DRUGS (11)
  1. SEROQUEL [Suspect]
     Indication: DEPRESSION
     Route: 048
     Dates: start: 20040116, end: 20060226
  2. ZYPREXA [Concomitant]
     Dates: start: 19971025, end: 20030808
  3. RISPERDAL [Concomitant]
     Dates: start: 20040101
  4. ABILIFY [Concomitant]
     Dates: start: 20070101
  5. GEODON [Concomitant]
     Dates: start: 20010330
  6. HALDOL [Concomitant]
     Dates: start: 20090101
  7. STELAZINE [Concomitant]
     Dosage: ONE TIME
     Dates: start: 19860101
  8. TEMAZEPAM [Concomitant]
     Dates: start: 20090101
  9. CHLORAL HYDRATE [Concomitant]
     Dosage: 500/5 MG
     Dates: start: 20090101
  10. XANAX [Concomitant]
     Dates: start: 20080101
  11. WELLBUTRIN [Concomitant]
     Dosage: 300 MG TO 450 MG
     Dates: start: 20080101

REACTIONS (6)
  - BLOOD CHOLESTEROL INCREASED [None]
  - BLOOD TRIGLYCERIDES INCREASED [None]
  - GALLBLADDER DISORDER [None]
  - HYSTERECTOMY [None]
  - KNEE ARTHROPLASTY [None]
  - TYPE 2 DIABETES MELLITUS [None]
